FAERS Safety Report 14678994 (Version 1)
Quarter: 2018Q1

REPORT INFORMATION
  Report Type: Spontaneous
  Country: GR (occurrence: GR)
  Receive Date: 20180326
  Receipt Date: 20180326
  Transmission Date: 20180509
  Serious: Yes (Death)
  Sender: FDA-Public Use
  Company Number: PHHY2018GR051648

PATIENT
  Age: 91 Year
  Sex: Female

DRUGS (3)
  1. LOPRESSOR [Concomitant]
     Active Substance: METOPROLOL TARTRATE
     Indication: EXTRASYSTOLES
     Dosage: 1/4 OF THE PILL THREE TIMES AD DAY
     Route: 065
  2. LOPRESSOR [Concomitant]
     Active Substance: METOPROLOL TARTRATE
     Dosage: 1/2 OF THE PILL THREE TIMES A DAY FOR THREE DAYS
     Route: 065
  3. DIGOXIN. [Suspect]
     Active Substance: DIGOXIN
     Indication: PRODUCT USED FOR UNKNOWN INDICATION
     Dosage: 0.25 MG, UNK
     Route: 065

REACTIONS (8)
  - Haematochezia [Fatal]
  - Seizure [Fatal]
  - Illusion [Fatal]
  - Cardiac arrest [Fatal]
  - Asthenia [Fatal]
  - Ileus [Fatal]
  - Speech disorder [Fatal]
  - Abdominal distension [Fatal]
